FAERS Safety Report 6297897-X (Version None)
Quarter: 2009Q3

REPORT INFORMATION
  Report Type: 
  Country: None (occurrence: None)
  Receive Date: 20090805
  Receipt Date: 20090730
  Transmission Date: 20100115
  Serious: No
  Sender: FDA-Public Use
  Company Number: CA-JNJFOC-20090709921

PATIENT

DRUGS (1)
  1. DURAGESIC-100 [Suspect]
     Indication: DRUG USE FOR UNKNOWN INDICATION
     Route: 062

REACTIONS (4)
  - INCORRECT DOSE ADMINISTERED [None]
  - MIOSIS [None]
  - SLUGGISHNESS [None]
  - WRONG TECHNIQUE IN DRUG USAGE PROCESS [None]
